FAERS Safety Report 9459193 (Version 7)
Quarter: 2019Q3

REPORT INFORMATION
  Report Type: Spontaneous
  Country: CA (occurrence: CA)
  Receive Date: 20130814
  Receipt Date: 20190926
  Transmission Date: 20191005
  Serious: Yes (Other)
  Sender: FDA-Public Use
  Company Number: CA-ROCHE-1261241

PATIENT
  Age: 70 Year
  Sex: Female

DRUGS (4)
  1. VENTOLIN [Concomitant]
     Active Substance: ALBUTEROL SULFATE
  2. FLOVENT [Concomitant]
     Active Substance: FLUTICASONE PROPIONATE
  3. ADVAIR HFA [Concomitant]
     Active Substance: FLUTICASONE PROPIONATE\SALMETEROL XINAFOATE
  4. XOLAIR [Suspect]
     Active Substance: OMALIZUMAB
     Indication: ASTHMA
     Route: 058
     Dates: start: 20120816, end: 20140703

REACTIONS (17)
  - Asthma [Unknown]
  - Pulmonary mycosis [Recovered/Resolved]
  - Breast cancer stage III [Unknown]
  - Red blood cell count decreased [Unknown]
  - Chest discomfort [Unknown]
  - Wheezing [Unknown]
  - Productive cough [Unknown]
  - Cough [Not Recovered/Not Resolved]
  - Blood immunoglobulin E increased [Unknown]
  - Malaise [Unknown]
  - Lower respiratory tract infection [Unknown]
  - Pain in extremity [Not Recovered/Not Resolved]
  - Rhinitis [Unknown]
  - Drug ineffective [Unknown]
  - Forced expiratory volume decreased [Unknown]
  - Dyspnoea [Unknown]
  - Eosinophil count increased [Unknown]

NARRATIVE: CASE EVENT DATE: 201211
